FAERS Safety Report 8945919 (Version 2)
Quarter: 2012Q4

REPORT INFORMATION
  Report Type: 
  Country: AU (occurrence: AU)
  Receive Date: 20121205
  Receipt Date: 20121217
  Transmission Date: 20130627
  Serious: Yes (Death, Hospitalization)
  Sender: FDA-Public Use
  Company Number: AU-B.I. PHARMACEUTICALS,INC./RIDGEFIELD-2012-AU-01937AU

PATIENT
  Age: 84 Year
  Sex: Female

DRUGS (2)
  1. PRADAXA [Suspect]
     Indication: CEREBROVASCULAR ACCIDENT PROPHYLAXIS
     Dates: start: 20110728
  2. PRADAXA [Suspect]
     Indication: ATRIAL FIBRILLATION

REACTIONS (5)
  - Death [Fatal]
  - Acute pulmonary oedema [Recovered/Resolved]
  - Lower respiratory tract infection [Recovered/Resolved]
  - Fall [Recovered/Resolved]
  - Delirium [Recovered/Resolved]
